FAERS Safety Report 5742906-7 (Version None)
Quarter: 2008Q2

REPORT INFORMATION
  Report Type: 
  Country: None (occurrence: None)
  Receive Date: 20080519
  Receipt Date: 20080508
  Transmission Date: 20081010
  Serious: Yes (Death, Hospitalization)
  Sender: FDA-Public Use
  Company Number: FR-ROCHE-561414

PATIENT
  Sex: Male
  Weight: 82.5 kg

DRUGS (4)
  1. PEGASYS [Suspect]
     Route: 058
     Dates: start: 20080123, end: 20080428
  2. RO 4588161 (HCV POLYMERASE INHIBITOR) [Suspect]
     Route: 048
     Dates: start: 20080123, end: 20080428
  3. RIBAVIRIN [Suspect]
     Route: 048
     Dates: start: 20080123, end: 20080428
  4. ATENOLOL [Concomitant]

REACTIONS (1)
  - VARICELLA [None]
